FAERS Safety Report 18904440 (Version 1)
Quarter: 2021Q1

REPORT INFORMATION
  Report Type: Spontaneous
  Country: US (occurrence: US)
  Receive Date: 20210217
  Receipt Date: 20210217
  Transmission Date: 20210420
  Serious: Yes (Hospitalization)
  Sender: FDA-Public Use
  Company Number: None

PATIENT
  Age: 62 Year
  Sex: Female

DRUGS (9)
  1. DEXAMETHASONE. [Concomitant]
     Active Substance: DEXAMETHASONE
  2. ONDANSETRON [Concomitant]
     Active Substance: ONDANSETRON
  3. AMLDOIPINE [Concomitant]
  4. MAGNESIUM [Concomitant]
     Active Substance: MAGNESIUM
  5. CALCITRIOL. [Concomitant]
     Active Substance: CALCITRIOL
  6. ZOLPIDEM [Concomitant]
     Active Substance: ZOLPIDEM TARTRATE
  7. TEMOZOLOMIDE. [Suspect]
     Active Substance: TEMOZOLOMIDE
     Indication: BRAIN NEOPLASM MALIGNANT
     Route: 048
     Dates: start: 20201208
  8. TEMOZOLOMIDE 100MG [Suspect]
     Active Substance: TEMOZOLOMIDE
     Indication: BRAIN NEOPLASM MALIGNANT
     Route: 048
     Dates: start: 20201208
  9. ENALAPRIL [Concomitant]
     Active Substance: ENALAPRIL

REACTIONS (2)
  - Drug intolerance [None]
  - Pneumonia [None]

NARRATIVE: CASE EVENT DATE: 20210106
